FAERS Safety Report 26215337 (Version 1)
Quarter: 2025Q4

REPORT INFORMATION
  Report Type: Spontaneous
  Country: EU (occurrence: EU)
  Receive Date: 20251230
  Receipt Date: 20251230
  Transmission Date: 20260118
  Serious: Yes (Other)
  Sender: MDD OPERATIONS
  Company Number: EU-MDD US Operations-MDD202512-005388

PATIENT
  Age: 59 Year
  Sex: Female

DRUGS (5)
  1. APOMORPHINE HYDROCHLORIDE [Suspect]
     Active Substance: APOMORPHINE HYDROCHLORIDE
     Indication: Parkinson^s disease
     Dosage: CONTINUOUS
  2. SAFINAMIDE [Suspect]
     Active Substance: SAFINAMIDE
     Indication: Parkinson^s disease
     Dosage: NOT PROVIDED
  3. RIMABOTULINUMTOXINB [Suspect]
     Active Substance: RIMABOTULINUMTOXINB
     Indication: Tremor
     Dosage: NOT PROVIDED
  4. LEVODOPA [Suspect]
     Active Substance: LEVODOPA
     Indication: Parkinson^s disease
     Dosage: AT DOSES AS LOW AS 50 MG
  5. LEVODOPA [Suspect]
     Active Substance: LEVODOPA
     Dosage: NOT PROVIDED

REACTIONS (6)
  - Dystonia [Not Recovered/Not Resolved]
  - Paresis [Unknown]
  - Hypotension [Unknown]
  - Dyskinesia [Unknown]
  - Drug ineffective [Unknown]
  - Drug ineffective for unapproved indication [Unknown]
